FAERS Safety Report 13363803 (Version 1)
Quarter: 2017Q1

REPORT INFORMATION
  Report Type: Report from Study
  Country: TW (occurrence: TW)
  Receive Date: 20170323
  Receipt Date: 20170323
  Transmission Date: 20170429
  Serious: Yes (Other)
  Sender: FDA-Public Use
  Company Number: TW-JNJFOC-20170318574

PATIENT
  Sex: Female
  Weight: 61 kg

DRUGS (1)
  1. SIMPONI [Suspect]
     Active Substance: GOLIMUMAB
     Indication: RHEUMATOID ARTHRITIS
     Route: 058
     Dates: start: 20150107, end: 20170214

REACTIONS (3)
  - Metastases to lung [Not Recovered/Not Resolved]
  - Colon cancer [Not Recovered/Not Resolved]
  - Latent tuberculosis [Unknown]
